FAERS Safety Report 4313060-3 (Version None)
Quarter: 2004Q1

REPORT INFORMATION
  Report Type: 
  Country: None (occurrence: None)
  Receive Date: 20040304
  Receipt Date: 20040213
  Transmission Date: 20041129
  Serious: Yes (Hospitalization)
  Sender: FDA-Public Use
  Company Number: 193186

PATIENT
  Age: 43 Year
  Sex: Female

DRUGS (1)
  1. AVONEX [Suspect]
     Indication: MULTIPLE SCLEROSIS

REACTIONS (7)
  - CONDITION AGGRAVATED [None]
  - CORONARY ARTERY THROMBOSIS [None]
  - FALL [None]
  - LIGAMENT INJURY [None]
  - MULTIPLE SCLEROSIS [None]
  - PULMONARY THROMBOSIS [None]
  - THROMBOSIS [None]
